FAERS Safety Report 8986032 (Version 1)
Quarter: 2012Q4

REPORT INFORMATION
  Report Type: Spontaneous
  Country: US (occurrence: None)
  Receive Date: 20121214
  Receipt Date: 20121214
  Transmission Date: 20130627
  Serious: Yes (Other)
  Sender: FDA-Public Use
  Company Number: AUR-APL-2012-05263

PATIENT
  Age: 47 Year
  Sex: Male

DRUGS (1)
  1. RISPERIDONE (RISPERIDONE) [Suspect]
     Indication: SCHIZOPHRENIA
     Dosage: high dose , unknown

REACTIONS (12)
  - Mental status changes [None]
  - Rhabdomyolysis [None]
  - Renal failure acute [None]
  - Metabolic disorder [None]
  - Electroencephalogram abnormal [None]
  - Nuclear magnetic resonance imaging brain abnormal [None]
  - Psychomotor retardation [None]
  - Social avoidant behaviour [None]
  - Immobile [None]
  - Mutism [None]
  - Hypokinesia [None]
  - Single photon emission computerised tomogram abnormal [None]
